FAERS Safety Report 5965611-0 (Version None)
Quarter: 2008Q4

REPORT INFORMATION
  Report Type: 
  Country: None (occurrence: None)
  Receive Date: 20081121
  Receipt Date: 20081121
  Transmission Date: 20090506
  Serious: No
  Sender: FDA-Public Use
  Company Number: None

PATIENT
  Age: 50 Year
  Sex: Male
  Weight: 117.4816 kg

DRUGS (2)
  1. NYSTATIN [Suspect]
     Indication: CANDIDIASIS
     Dosage: 1/4 TSP 3 TIMES DAILY ORAL
     Route: 048
     Dates: start: 20081031
  2. SIMVASTATIN [Concomitant]

REACTIONS (2)
  - HEADACHE [None]
  - OCULAR HYPERAEMIA [None]
